FAERS Safety Report 19278195 (Version 3)
Quarter: 2021Q3

REPORT INFORMATION
  Report Type: Report from Study
  Country: US (occurrence: US)
  Receive Date: 20210520
  Receipt Date: 20210720
  Transmission Date: 20211014
  Serious: Yes (Hospitalization, Other)
  Sender: FDA-Public Use
  Company Number: US-PFIZER INC-2021522837

PATIENT
  Age: 59 Year
  Sex: Female
  Weight: 113.4 kg

DRUGS (10)
  1. TREPROSTINIL DIETHANOLAMINE [Suspect]
     Active Substance: TREPROSTINIL
     Indication: PULMONARY ARTERIAL HYPERTENSION
     Dosage: UNK
     Route: 048
     Dates: start: 20201222
  2. ORENITRAM [Suspect]
     Active Substance: TREPROSTINIL
     Dosage: UNK
     Route: 048
  3. OPSUMIT [Suspect]
     Active Substance: MACITENTAN
     Dosage: UNK
     Dates: end: 202106
  4. TREPROSTINIL DIETHANOLAMINE [Suspect]
     Active Substance: TREPROSTINIL
     Dosage: 3.5 MG, Q8H
     Route: 048
  5. ORENITRAM [Suspect]
     Active Substance: TREPROSTINIL
     Dosage: UNK
     Route: 048
  6. OPSUMIT [Suspect]
     Active Substance: MACITENTAN
     Indication: PRODUCT USED FOR UNKNOWN INDICATION
     Dosage: UNK
     Dates: start: 202104
  7. ORENITRAM [Suspect]
     Active Substance: TREPROSTINIL
     Indication: PULMONARY ARTERIAL HYPERTENSION
     Dosage: UNK
     Route: 048
  8. ORENITRAM [Suspect]
     Active Substance: TREPROSTINIL
     Dosage: UNK
     Route: 048
  9. SILDENAFIL CITRATE. [Suspect]
     Active Substance: SILDENAFIL CITRATE
     Dosage: UNK
  10. ORENITRAM [Suspect]
     Active Substance: TREPROSTINIL
     Dosage: 3.5 MG 3X/DAY
     Route: 048
     Dates: end: 202106

REACTIONS (6)
  - Loss of consciousness [Unknown]
  - Dizziness [Unknown]
  - Headache [Unknown]
  - Respiration abnormal [Unknown]
  - Hypotension [Recovering/Resolving]
  - Head injury [Unknown]

NARRATIVE: CASE EVENT DATE: 2021
